FAERS Safety Report 8090460-X (Version None)
Quarter: 2012Q1

REPORT INFORMATION
  Report Type: 
  Country: None (occurrence: None)
  Receive Date: 20120129
  Receipt Date: 20111115
  Transmission Date: 20120608
  Serious: No
  Sender: FDA-Public Use
  Company Number: US-ABBOTT-11P-163-0876099-00

PATIENT
  Age: 31 Year
  Sex: Female
  Weight: 81.72 kg

DRUGS (2)
  1. HUMIRA [Suspect]
     Indication: PSORIASIS
     Route: 058
     Dates: end: 20110701
  2. HUMIRA [Suspect]
     Dosage: HAD STOPPED HUMIRA FOR 6 WEEKS.
     Route: 058

REACTIONS (5)
  - CHEST DISCOMFORT [None]
  - BRONCHITIS [None]
  - NASAL CONGESTION [None]
  - COUGH [None]
  - RESPIRATORY TRACT CONGESTION [None]
